FAERS Safety Report 12168600 (Version 3)
Quarter: 2016Q3

REPORT INFORMATION
  Report Type: Spontaneous
  Country: JP (occurrence: JP)
  Receive Date: 20160310
  Receipt Date: 20160726
  Transmission Date: 20161109
  Serious: Yes (Hospitalization, Disabling, Other)
  Sender: FDA-Public Use
  Company Number: JP-GILEAD-2016-0201410AA

PATIENT
  Age: 74 Year
  Sex: Female
  Weight: 49.6 kg

DRUGS (10)
  1. HARVONI [Suspect]
     Active Substance: LEDIPASVIR\SOFOSBUVIR
     Dosage: 400 MG, UNK
     Route: 048
     Dates: start: 20160207, end: 20160215
  2. LANSOPRAZOLE. [Concomitant]
     Active Substance: LANSOPRAZOLE
     Indication: GASTROOESOPHAGEAL REFLUX DISEASE
     Dosage: 30 MG, UNK
     Route: 048
  3. URSODEOXYCHOLIC AC [Concomitant]
     Indication: HEPATITIS C
     Dosage: 600 MG, UNK
     Route: 048
  4. MONILAC [Concomitant]
     Active Substance: LACTULOSE
     Indication: CONSTIPATION
     Dosage: 30 CC, UNK
     Route: 048
  5. ALPRAZOLAM. [Concomitant]
     Active Substance: ALPRAZOLAM
     Indication: ANXIETY
     Dosage: 1.2 MG, UNK
     Route: 048
  6. HARVONI [Suspect]
     Active Substance: LEDIPASVIR\SOFOSBUVIR
     Indication: HEPATIC CIRRHOSIS
     Dosage: 400 MG, UNK
     Route: 048
     Dates: start: 20160127, end: 20160201
  7. HARVONI [Suspect]
     Active Substance: LEDIPASVIR\SOFOSBUVIR
     Dosage: 400 MG, UNK
     Route: 048
     Dates: start: 20160205, end: 20160205
  8. SENNA [Concomitant]
     Active Substance: SENNA LEAF\SENNOSIDES\SENNOSIDES A AND B
     Indication: CONSTIPATION
     Dosage: 0.5 MG, UNK
     Route: 048
  9. SM [Concomitant]
     Dosage: 3 DF, UNK
     Route: 048
  10. ZOLPIDEM                           /00914902/ [Concomitant]
     Active Substance: ZOLPIDEM\ZOLPIDEM TARTRATE
     Indication: INSOMNIA
     Dosage: 5 MG, UNK
     Route: 048
     Dates: start: 20160127

REACTIONS (4)
  - Ascites [Unknown]
  - Hyponatraemia [Recovered/Resolved]
  - Hepatic cirrhosis [Recovering/Resolving]
  - Renal impairment [Not Recovered/Not Resolved]

NARRATIVE: CASE EVENT DATE: 20160201
